FAERS Safety Report 7775313-6 (Version None)
Quarter: 2011Q3

REPORT INFORMATION
  Report Type: 
  Country: None (occurrence: None)
  Receive Date: 20110923
  Receipt Date: 20110912
  Transmission Date: 20111222
  Serious: Yes (Death, Hospitalization)
  Sender: FDA-Public Use
  Company Number: PL-JNJFOC-20110905519

PATIENT
  Age: 25 Year
  Sex: Male
  Weight: 60 kg

DRUGS (13)
  1. PIRAMIL [Concomitant]
     Indication: PROTEINURIA
     Dates: start: 20100101
  2. VITAMIN D [Concomitant]
     Indication: PROPHYLAXIS
     Dates: start: 20070101
  3. METHOTREXATE [Suspect]
     Indication: ARTHRITIS
     Route: 048
  4. METHYLPREDNISOLONE [Concomitant]
     Indication: AMYLOIDOSIS
     Dates: start: 20050101
  5. HELICID [Concomitant]
     Indication: PROPHYLAXIS
     Dates: start: 20050101
  6. METHOTREXATE [Suspect]
     Route: 048
     Dates: start: 20110523, end: 20110801
  7. METHYLPREDNISOLONE [Concomitant]
     Indication: ARTHRITIS
     Dates: start: 20050101
  8. REMICADE [Suspect]
     Indication: AMYLOIDOSIS
     Route: 042
     Dates: start: 20110525, end: 20110713
  9. ALENDRONIC ACID [Concomitant]
     Indication: PROPHYLAXIS
     Dates: start: 20070101
  10. REMICADE [Suspect]
     Route: 042
     Dates: start: 20090101
  11. REMICADE [Suspect]
     Indication: ANKYLOSING SPONDYLITIS
     Route: 042
     Dates: start: 20110525, end: 20110713
  12. REMICADE [Suspect]
     Route: 042
     Dates: start: 20090101
  13. CALCIUM CARBONATE [Concomitant]
     Indication: PROPHYLAXIS
     Dates: start: 20070101

REACTIONS (2)
  - PNEUMONIA [None]
  - RENAL FAILURE ACUTE [None]
